FAERS Safety Report 6298105-6 (Version None)
Quarter: 2009Q3

REPORT INFORMATION
  Report Type: 
  Country: None (occurrence: None)
  Receive Date: 20090805
  Receipt Date: 20090727
  Transmission Date: 20100115
  Serious: Yes (Hospitalization)
  Sender: FDA-Public Use
  Company Number: PHHY2009CA31642

PATIENT
  Sex: Male

DRUGS (2)
  1. DIOVAN HCT [Suspect]
     Dosage: 1 TABLET DAILY
     Dates: start: 20070101, end: 20070801
  2. DIOVAN HCT [Suspect]
     Dosage: 1 TABLET DAILY
     Route: 048
     Dates: start: 20090727

REACTIONS (2)
  - AORTIC ANEURYSM [None]
  - SURGERY [None]
